FAERS Safety Report 13436887 (Version 1)
Quarter: 2017Q2

REPORT INFORMATION
  Report Type: Spontaneous
  Country: US (occurrence: US)
  Receive Date: 20170413
  Receipt Date: 20170413
  Transmission Date: 20170830
  Serious: Yes (Other)
  Sender: FDA-Public Use
  Company Number: US-FRESENIUS KABI-FK201703080

PATIENT
  Age: 52 Year
  Sex: Female

DRUGS (10)
  1. METHOTREXATE (MANUFACTURER UNKNOWN) [Suspect]
     Active Substance: METHOTREXATE
     Route: 037
  2. DOXORUBICIN [Concomitant]
     Active Substance: DOXORUBICIN
     Indication: BURKITT^S LYMPHOMA
  3. CYTARABINE. [Concomitant]
     Active Substance: CYTARABINE
     Indication: BURKITT^S LYMPHOMA
  4. IFOSFAMIDE. [Concomitant]
     Active Substance: IFOSFAMIDE
     Indication: BURKITT^S LYMPHOMA
  5. ETOPOSIDE. [Concomitant]
     Active Substance: ETOPOSIDE
     Indication: BURKITT^S LYMPHOMA
  6. LEUCOVORIN. [Concomitant]
     Active Substance: LEUCOVORIN
     Indication: BURKITT^S LYMPHOMA
  7. CYCLOPHOSPHAMIDE. [Concomitant]
     Active Substance: CYCLOPHOSPHAMIDE
     Indication: BURKITT^S LYMPHOMA
  8. VINCRISTINE [Concomitant]
     Active Substance: VINCRISTINE
     Indication: BURKITT^S LYMPHOMA
  9. METHOTREXATE (MANUFACTURER UNKNOWN) [Suspect]
     Active Substance: METHOTREXATE
     Indication: BURKITT^S LYMPHOMA
     Route: 042
  10. MESNA. [Concomitant]
     Active Substance: MESNA
     Indication: BURKITT^S LYMPHOMA

REACTIONS (2)
  - Meningitis aseptic [Unknown]
  - Myelopathy [Unknown]
